FAERS Safety Report 4355144-X (Version None)
Quarter: 2004Q2

REPORT INFORMATION
  Report Type: 
  Country: None (occurrence: None)
  Receive Date: 20040510
  Receipt Date: 20040429
  Transmission Date: 20050107
  Serious: Yes (Hospitalization)
  Sender: FDA-Public Use
  Company Number: 200411394EU

PATIENT
  Age: 80 Year
  Sex: Female

DRUGS (11)
  1. FLAGYL [Suspect]
     Indication: DIVERTICULUM INTESTINAL
     Route: 048
     Dates: start: 20040213, end: 20040220
  2. CIPROXIN [Suspect]
     Indication: DIVERTICULUM INTESTINAL
     Route: 048
     Dates: start: 20040213, end: 20040223
  3. AUGMENTIN [Suspect]
     Indication: CHRONIC OBSTRUCTIVE AIRWAYS DISEASE EXACERBATED
     Route: 042
     Dates: start: 20040114, end: 20040129
  4. PANTOZOL [Concomitant]
     Route: 048
  5. ASPIRIN CARDIO [Concomitant]
     Route: 048
  6. FOSAMAX [Concomitant]
     Route: 048
  7. TOREM [Concomitant]
     Route: 048
  8. COVERSUM [Concomitant]
     Route: 048
  9. VITAMIN D3 [Concomitant]
     Route: 048
  10. AXOTIDE [Concomitant]
     Route: 055
  11. SEREVENT [Concomitant]
     Route: 055

REACTIONS (2)
  - HEPATITIS CHOLESTATIC [None]
  - VOMITING [None]
